FAERS Safety Report 13229926 (Version 2)
Quarter: 2017Q1

REPORT INFORMATION
  Report Type: Spontaneous
  Country: US (occurrence: US)
  Receive Date: 20170214
  Receipt Date: 20170329
  Transmission Date: 20170428
  Serious: No
  Sender: FDA-Public Use
  Company Number: US-PFIZER INC-2017059841

PATIENT
  Age: 81 Year
  Sex: Female

DRUGS (6)
  1. CRESTOR [Concomitant]
     Active Substance: ROSUVASTATIN CALCIUM
     Dosage: 10 MG, UNK (1)
  2. ISOSORBIDE. [Concomitant]
     Active Substance: ISOSORBIDE
     Indication: DYSPNOEA
     Dosage: 60 MG, UNK (1)
  3. OMEPRAZOLE. [Concomitant]
     Active Substance: OMEPRAZOLE
     Dosage: 20 MG, UNK (1)
  4. ESCITALOPRAM [Concomitant]
     Active Substance: ESCITALOPRAM OXALATE
     Indication: ANXIETY
     Dosage: 20 MG, UNK (1)
  5. METOPROLOL. [Concomitant]
     Active Substance: METOPROLOL
     Indication: DYSPNOEA
     Dosage: 25 MG, UNK (1)
  6. LYRICA [Suspect]
     Active Substance: PREGABALIN
     Indication: FIBROMYALGIA
     Dosage: 375 MG, UNK (75 MG 5 PILLS (1))

REACTIONS (1)
  - Nasopharyngitis [Not Recovered/Not Resolved]
